FAERS Safety Report 4341389-1 (Version None)
Quarter: 2004Q2

REPORT INFORMATION
  Report Type: 
  Country: None (occurrence: None)
  Receive Date: 20040413
  Receipt Date: 20040401
  Transmission Date: 20050107
  Serious: Yes (Other)
  Sender: FDA-Public Use
  Company Number: HQWYE314101APR04

PATIENT
  Age: 62 Year
  Sex: Female

DRUGS (3)
  1. CORDAREX (AMIODARONE, TABLET) [Suspect]
     Dosage: 200 MG 2X PER 1 DAY ORAL
     Route: 048
  2. ISOPTIN [Concomitant]
  3. MARCUMAR [Concomitant]

REACTIONS (5)
  - BLOOD CREATINE PHOSPHOKINASE INCREASED [None]
  - BLOOD LACTATE DEHYDROGENASE INCREASED [None]
  - HEPATIC ENZYME INCREASED [None]
  - MYALGIA [None]
  - POLYNEUROPATHY [None]
